FAERS Safety Report 5130248-2 (Version None)
Quarter: 2006Q4

REPORT INFORMATION
  Report Type: 
  Country: None (occurrence: None)
  Receive Date: 20061013
  Receipt Date: 20060928
  Transmission Date: 20070319
  Serious: Yes (Hospitalization)
  Sender: FDA-Public Use
  Company Number: REM_00262_2006

PATIENT
  Age: 43 Year
  Sex: Female
  Weight: 59 kg

DRUGS (12)
  1. REMODULIN [Suspect]
     Indication: PULMONARY HYPERTENSION
     Dosage: 75 NG/KG/MIN CONTINUOUS IV
     Route: 042
     Dates: start: 20050501
  2. SITAXSENTAN [Concomitant]
  3. ZANTAC [Concomitant]
  4. COUMADIN [Concomitant]
  5. SEROQUEL [Concomitant]
  6. LASIX [Concomitant]
  7. K-DUR 10 [Concomitant]
  8. ADVAIR HFA [Concomitant]
  9. DIGOXIN [Concomitant]
  10. LEXAPRO [Concomitant]
  11. PLAQUENIL /00072602/ [Concomitant]
  12. ALDACTONE [Concomitant]

REACTIONS (12)
  - ACUTE RESPIRATORY DISTRESS SYNDROME [None]
  - BACTERIAL INFECTION [None]
  - CENTRAL LINE INFECTION [None]
  - CLOSTRIDIUM DIFFICILE COLITIS [None]
  - DIPHTHERIA [None]
  - KLEBSIELLA INFECTION [None]
  - NOCARDIOSIS [None]
  - RENAL FAILURE ACUTE [None]
  - RENAL TUBULAR NECROSIS [None]
  - SEPTIC SHOCK [None]
  - UPPER RESPIRATORY TRACT INFECTION [None]
  - WRONG TECHNIQUE IN DRUG USAGE PROCESS [None]
